FAERS Safety Report 5263618-2 (Version None)
Quarter: 2007Q1

REPORT INFORMATION
  Report Type: 
  Country: None (occurrence: None)
  Receive Date: 20061213
  Receipt Date: 20040730
  Transmission Date: 20070707
  Serious: No
  Sender: FDA-Public Use
  Company Number: 2004UW16236

PATIENT
  Age: 78 Year
  Sex: Female

DRUGS (8)
  1. IRESSA [Suspect]
     Indication: LUNG CANCER METASTATIC
     Dates: start: 20040101
  2. MOBIC [Concomitant]
  3. LASIX [Concomitant]
  4. PREDNISONE [Concomitant]
  5. NIFEDICAL [Concomitant]
  6. SYNTHROID [Concomitant]
  7. OXYGEN [Concomitant]
  8. IRON INFUSION [Concomitant]

REACTIONS (4)
  - DYSPNOEA [None]
  - HYPERHIDROSIS [None]
  - PNEUMONITIS [None]
  - RALES [None]
